FAERS Safety Report 5801134-7 (Version None)
Quarter: 2008Q3

REPORT INFORMATION
  Report Type: 
  Country: None (occurrence: None)
  Receive Date: 20080707
  Receipt Date: 20080623
  Transmission Date: 20090109
  Serious: Yes (Other)
  Sender: FDA-Public Use
  Company Number: PHHY2008DE12228

PATIENT
  Sex: Female

DRUGS (1)
  1. MYFORTIC [Suspect]
     Indication: POLYARTERITIS NODOSA
     Dosage: 360 MG, BID
     Route: 048
     Dates: start: 20080620, end: 20080622

REACTIONS (4)
  - BACK PAIN [None]
  - CARDIAC DISORDER [None]
  - CHEST PAIN [None]
  - PAIN IN EXTREMITY [None]
